FAERS Safety Report 13965554 (Version 1)
Quarter: 2017Q3

REPORT INFORMATION
  Report Type: Spontaneous
  Country: US (occurrence: US)
  Receive Date: 20170913
  Receipt Date: 20170913
  Transmission Date: 20171128
  Serious: Yes (Hospitalization, Other)
  Sender: FDA-Public Use
  Company Number: US-PFIZER INC-2017394926

PATIENT
  Age: 51 Year
  Sex: Male
  Weight: 55.79 kg

DRUGS (1)
  1. VFEND [Suspect]
     Active Substance: VORICONAZOLE
     Indication: CYSTITIS
     Dosage: ONE PILL IN MORNING AND ONE AFTERNOON
     Dates: start: 2017

REACTIONS (3)
  - Urinary tract obstruction [Unknown]
  - Bladder pain [Unknown]
  - Bladder obstruction [Unknown]
